FAERS Safety Report 7099456-8 (Version None)
Quarter: 2010Q4

REPORT INFORMATION
  Report Type: 
  Country: None (occurrence: None)
  Receive Date: 20101112
  Receipt Date: 20101103
  Transmission Date: 20110411
  Serious: Yes (Other)
  Sender: FDA-Public Use
  Company Number: GXKR2010BR12508

PATIENT
  Sex: Female
  Weight: 82 kg

DRUGS (3)
  1. DICLAC (NGX) [Suspect]
     Indication: RHEUMATOID ARTHRITIS
     Dosage: 50 MG, QD
     Route: 048
  2. ATENOLOL [Concomitant]
     Indication: BLOOD PRESSURE
     Dosage: 25 MG, QD
     Route: 065
  3. AMILORIDE HCL AND HYDROCHLOROTHIAZIDE [Concomitant]
     Indication: BLOOD PRESSURE
     Dosage: 1 DF, QD
     Route: 065

REACTIONS (5)
  - ABDOMINAL PAIN [None]
  - DEPRESSION [None]
  - HAEMATOCHEZIA [None]
  - IRRITABILITY [None]
  - MENTAL DISORDER [None]
